FAERS Safety Report 19470382 (Version 1)
Quarter: 2021Q2

REPORT INFORMATION
  Report Type: Spontaneous
  Country: NL (occurrence: NL)
  Receive Date: 20210629
  Receipt Date: 20210629
  Transmission Date: 20210717
  Serious: Yes (Life-Threatening, Other)
  Sender: FDA-Public Use
  Company Number: NL-AUROBINDO-AUR-APL-2021-027055

PATIENT
  Age: 66 Year
  Sex: Female
  Weight: 98 kg

DRUGS (4)
  1. PREDNISON 5 MG TABLET [Suspect]
     Active Substance: PREDNISONE
     Indication: PRODUCT USED FOR UNKNOWN INDICATION
     Dosage: UNK (1DD 15 MG, TAPERING SCHEDULE OF 40 MG (START MARCH 2021)
     Route: 065
     Dates: start: 202103
  2. AMITRIPTYLINE HYDROCHLORIDE. [Concomitant]
     Active Substance: AMITRIPTYLINE HYDROCHLORIDE
     Indication: PRODUCT USED FOR UNKNOWN INDICATION
     Dosage: 25 MILLIGRAM
     Route: 065
  3. TAMOXIFEN 20 MG TABLET [Suspect]
     Active Substance: TAMOXIFEN CITRATE
     Indication: BREAST CANCER
     Dosage: 20 MILLIGRAM
     Route: 065
  4. KADCYLA [Suspect]
     Active Substance: ADO-TRASTUZUMAB EMTANSINE
     Indication: BREAST CANCER
     Dosage: 3.6 MILLIGRAM/KILOGRAM (INTRAVENOUS, EVERY 21 DAYS)
     Route: 042
     Dates: start: 202101, end: 20210611

REACTIONS (3)
  - Radiation pneumonitis [Unknown]
  - Pneumocystis jirovecii pneumonia [Recovering/Resolving]
  - Pulmonary embolism [Unknown]

NARRATIVE: CASE EVENT DATE: 202103
